FAERS Safety Report 6407445-9 (Version None)
Quarter: 2009Q4

REPORT INFORMATION
  Report Type: 
  Country: None (occurrence: None)
  Receive Date: 20091020
  Receipt Date: 20091013
  Transmission Date: 20100525
  Serious: Yes (Death, Hospitalization)
  Sender: FDA-Public Use
  Company Number: US-CELGENEUS-163-21880-09082017

PATIENT
  Sex: Female

DRUGS (9)
  1. REVLIMID [Suspect]
     Indication: MULTIPLE MYELOMA
     Route: 048
     Dates: start: 20081001, end: 20090816
  2. LEVAQUIN [Concomitant]
     Indication: PNEUMONIA
     Route: 051
     Dates: start: 20090815, end: 20090801
  3. XOPENEX [Concomitant]
     Indication: PNEUMONIA
     Route: 065
     Dates: start: 20090815, end: 20090801
  4. AMIODARONE [Concomitant]
     Indication: ATRIAL FIBRILLATION
     Route: 065
     Dates: start: 20090815, end: 20090801
  5. ETOMIDATE [Concomitant]
     Route: 065
     Dates: start: 20090815, end: 20090801
  6. SUCCINYLCHOLINE [Concomitant]
     Route: 065
     Dates: start: 20090815, end: 20090801
  7. LEVOPHED [Concomitant]
     Route: 065
     Dates: start: 20090815, end: 20090801
  8. COUMADIN [Concomitant]
     Indication: DRUG USE FOR UNKNOWN INDICATION
     Route: 065
     Dates: end: 20090801
  9. NEO-SYNEPHRINOL [Concomitant]
     Indication: DRUG USE FOR UNKNOWN INDICATION
     Route: 051
     Dates: start: 20090801, end: 20090801

REACTIONS (6)
  - ANAEMIA [None]
  - CARDIAC ARREST [None]
  - CARDIOGENIC SHOCK [None]
  - HYPONATRAEMIA [None]
  - NEUTROPENIA [None]
  - PNEUMONIA [None]
